FAERS Safety Report 5930402-3 (Version None)
Quarter: 2008Q4

REPORT INFORMATION
  Report Type: 
  Country: None (occurrence: None)
  Receive Date: 20081021
  Receipt Date: 20081009
  Transmission Date: 20090506
  Serious: Yes (Hospitalization)
  Sender: FDA-Public Use
  Company Number: 20085242

PATIENT
  Sex: Male

DRUGS (1)
  1. LIORESAL [Suspect]
     Indication: MUSCLE SPASTICITY
     Dosage: 599.8 MCG, DAILY, INTRATHECAL
     Route: 037

REACTIONS (10)
  - ASTHENIA [None]
  - DRUG WITHDRAWAL SYNDROME [None]
  - HYPERTENSION [None]
  - INFLUENZA LIKE ILLNESS [None]
  - MUSCLE SPASTICITY [None]
  - NAUSEA [None]
  - PRURITUS [None]
  - TREATMENT NONCOMPLIANCE [None]
  - URINARY RETENTION [None]
  - VOMITING [None]
